FAERS Safety Report 4483121-7 (Version None)
Quarter: 2004Q3

REPORT INFORMATION
  Report Type: 
  Country: None (occurrence: None)
  Receive Date: 20040921
  Receipt Date: 20040130
  Transmission Date: 20050211
  Serious: Yes (Other)
  Sender: FDA-Public Use
  Company Number: 163-20785-04020004

PATIENT
  Age: 79 Year
  Sex: Male

DRUGS (6)
  1. THALOMID [Suspect]
     Indication: PROSTATE CANCER
     Dosage: 100 MG, DAILY, ORAL
     Route: 048
     Dates: start: 20031201
  2. NEXIUM [Concomitant]
  3. PREDNISONE [Concomitant]
  4. COUMADIN [Concomitant]
  5. CALCIUM (CALCIUM) [Concomitant]
  6. VITAMINS (VITAMINS) [Concomitant]

REACTIONS (2)
  - AMNESIA [None]
  - MEMORY IMPAIRMENT [None]
